FAERS Safety Report 24544914 (Version 1)
Quarter: 2024Q4

REPORT INFORMATION
  Report Type: Spontaneous
  Country: US (occurrence: None)
  Receive Date: 20241023
  Receipt Date: 20241023
  Transmission Date: 20250114
  Serious: Yes (Other)
  Sender: Public
  Company Number: None

PATIENT
  Age: 32 Year
  Sex: Female
  Weight: 52.2 kg

DRUGS (8)
  1. LEVOTHYROXINE\LIOTHYRONINE [Suspect]
     Active Substance: LEVOTHYROXINE\LIOTHYRONINE
     Indication: Autoimmune thyroiditis
     Dosage: OTHER QUANTITY : 1 TABLET(S);?
     Route: 048
     Dates: start: 20240927, end: 20241007
  2. BOTOX [Concomitant]
     Active Substance: ONABOTULINUMTOXINA
  3. MAGNESIUM GLYCINATE [Concomitant]
     Active Substance: MAGNESIUM GLYCINATE
  4. vitmain D [Concomitant]
  5. COENZYME Q10 [Concomitant]
     Active Substance: DIETARY SUPPLEMENT\UBIDECARENONE
  6. NAC [Concomitant]
  7. high DHA Omega 3 [Concomitant]
  8. MELATONIN [Concomitant]
     Active Substance: MELATONIN

REACTIONS (6)
  - Myalgia [None]
  - Arthralgia [None]
  - Mobility decreased [None]
  - Crying [None]
  - Nausea [None]
  - Ventricular extrasystoles [None]

NARRATIVE: CASE EVENT DATE: 20241003
